FAERS Safety Report 7005843-6 (Version None)
Quarter: 2010Q3

REPORT INFORMATION
  Report Type: 
  Country: None (occurrence: None)
  Receive Date: 20100921
  Receipt Date: 20100917
  Transmission Date: 20110219
  Serious: Yes (Other)
  Sender: FDA-Public Use
  Company Number: US-BRISTOL-MYERS SQUIBB COMPANY-15292451

PATIENT
  Age: 84 Year
  Sex: Female

DRUGS (6)
  1. AVAPRO [Suspect]
  2. DIGOXIN [Concomitant]
  3. ASPIRIN [Concomitant]
  4. METOPROLOL [Concomitant]
  5. FUROSEMIDE [Concomitant]
  6. SPIRONOLACTONE [Concomitant]

REACTIONS (11)
  - ABDOMINAL PAIN UPPER [None]
  - ARTHRITIS [None]
  - BLOOD CHOLESTEROL INCREASED [None]
  - CARDIAC FAILURE [None]
  - CARDIAC FIBRILLATION [None]
  - DIZZINESS [None]
  - DYSPNOEA [None]
  - HYPONATRAEMIC SYNDROME [None]
  - HYPOTENSION [None]
  - OSTEOPOROSIS [None]
  - VITAMIN D DECREASED [None]
